FAERS Safety Report 5301265-4 (Version None)
Quarter: 2007Q2

REPORT INFORMATION
  Report Type: 
  Country: None (occurrence: None)
  Receive Date: 20070418
  Receipt Date: 20070410
  Transmission Date: 20071010
  Serious: Yes (Other)
  Sender: FDA-Public Use
  Company Number: GB-PFIZER INC-2007029351

PATIENT
  Age: 72 Year
  Sex: Female
  Weight: 74 kg

DRUGS (6)
  1. PRAZOSIN HCL [Suspect]
     Indication: HYPERTENSION
     Route: 048
     Dates: start: 20061030, end: 20070305
  2. ASPIRIN [Concomitant]
     Dosage: DAILY DOSE:75MG
     Route: 048
  3. BENDROFLUAZIDE [Concomitant]
     Indication: HYPERTENSION
     Dosage: DAILY DOSE:2.5MG
     Dates: start: 20040101
  4. FLUOXETINE [Concomitant]
     Indication: DEPRESSION
     Dosage: DAILY DOSE:20MG
     Route: 048
     Dates: start: 19990101
  5. LANSOPRAZOLE [Concomitant]
     Indication: GASTROOESOPHAGEAL REFLUX DISEASE
     Dosage: DAILY DOSE:15MG
     Route: 048
     Dates: start: 20020101
  6. PARACETAMOL [Concomitant]
     Route: 048
     Dates: start: 20000101

REACTIONS (3)
  - ABNORMAL DREAMS [None]
  - DEPRESSIVE SYMPTOM [None]
  - WEIGHT INCREASED [None]
